FAERS Safety Report 5522263-1 (Version None)
Quarter: 2007Q4

REPORT INFORMATION
  Report Type: 
  Country: None (occurrence: None)
  Receive Date: 20071120
  Receipt Date: 20071115
  Transmission Date: 20080405
  Serious: Yes (Other)
  Sender: FDA-Public Use
  Company Number: FR-JNJFOC-20071105362

PATIENT
  Age: 85 Year
  Sex: Female

DRUGS (2)
  1. REMINYL LP [Suspect]
     Indication: DRUG USE FOR UNKNOWN INDICATION
     Route: 048
  2. DIAMICRON [Concomitant]

REACTIONS (1)
  - ACUTE CORONARY SYNDROME [None]
